FAERS Safety Report 4479742-8 (Version None)
Quarter: 2004Q4

REPORT INFORMATION
  Report Type: 
  Country: None (occurrence: None)
  Receive Date: 20041019
  Receipt Date: 20041011
  Transmission Date: 20050328
  Serious: Yes (Hospitalization, Other)
  Sender: FDA-Public Use
  Company Number: 04-10-1433

PATIENT
  Age: 53 Year
  Sex: Male

DRUGS (4)
  1. FLUOXETINE [Suspect]
     Indication: DEPRESSION
     Dosage: ORAL
     Route: 048
  2. CLONAZEPAM [Concomitant]
  3. TRAMADOL HCL [Concomitant]
  4. TRAZODONE HCL [Concomitant]

REACTIONS (4)
  - C-REACTIVE PROTEIN INCREASED [None]
  - OEDEMA [None]
  - PETECHIAE [None]
  - SEROTONIN SYNDROME [None]
